FAERS Safety Report 7432776-3 (Version None)
Quarter: 2011Q2

REPORT INFORMATION
  Report Type: 
  Country: None (occurrence: None)
  Receive Date: 20110422
  Receipt Date: 20110405
  Transmission Date: 20111010
  Serious: Yes (Hospitalization)
  Sender: FDA-Public Use
  Company Number: B0712148A

PATIENT
  Sex: Male

DRUGS (2)
  1. CEFTAZIDIME [Suspect]
     Dosage: 1UNIT PER DAY
     Route: 042
     Dates: start: 20100101, end: 20100109
  2. LEVOXACIN [Suspect]
     Dosage: 1G PER DAY
     Route: 042
     Dates: start: 20100101, end: 20100109

REACTIONS (3)
  - TRANSAMINASES INCREASED [None]
  - CONDITION AGGRAVATED [None]
  - LIVER DISORDER [None]
